FAERS Safety Report 6250513-5 (Version None)
Quarter: 2009Q2

REPORT INFORMATION
  Report Type: 
  Country: None (occurrence: None)
  Receive Date: 20090630
  Receipt Date: 20090622
  Transmission Date: 20091009
  Serious: Yes (Other)
  Sender: FDA-Public Use
  Company Number: US-ROCHE-639993

PATIENT
  Age: 60 Year
  Sex: Female

DRUGS (1)
  1. CAPECITABINE [Suspect]
     Indication: BREAST CANCER
     Dosage: THERAPY: 3 TABLETS IN MORNING, 2 TABLETS IN EVENING, WITH THERAPY 2 WEEKS ON AND 1 WEEK OFF.
     Route: 048
     Dates: start: 20081128, end: 20090525

REACTIONS (1)
  - DISEASE PROGRESSION [None]
